FAERS Safety Report 13442046 (Version 1)
Quarter: 2017Q2

REPORT INFORMATION
  Report Type: Spontaneous
  Country: FR (occurrence: FR)
  Receive Date: 20170413
  Receipt Date: 20170413
  Transmission Date: 20170830
  Serious: Yes (Other)
  Sender: FDA-Public Use
  Company Number: FR-EMD SERONO-8152006

PATIENT
  Sex: Female

DRUGS (1)
  1. OVITRELLE [Suspect]
     Active Substance: CHORIOGONADOTROPIN ALFA
     Indication: INFERTILITY

REACTIONS (4)
  - Pain [Unknown]
  - Malaise [Unknown]
  - Syncope [Unknown]
  - Procedural pain [Unknown]

NARRATIVE: CASE EVENT DATE: 201704
